FAERS Safety Report 6719506-5 (Version None)
Quarter: 2010Q2

REPORT INFORMATION
  Report Type: 
  Country: None (occurrence: None)
  Receive Date: 20100511
  Receipt Date: 20100429
  Transmission Date: 20101027
  Serious: Yes (Hospitalization)
  Sender: FDA-Public Use
  Company Number: IT-ROCHE-700717

PATIENT
  Sex: Female
  Weight: 73 kg

DRUGS (9)
  1. TRASTUZUMAB [Suspect]
     Indication: BREAST CANCER
     Dosage: LOADING DOSE.
     Route: 042
     Dates: start: 20050421
  2. TRASTUZUMAB [Suspect]
     Dosage: DOSE : 6 MG/KG, MAINTENANCE DOSE
     Route: 042
     Dates: start: 20050512
  3. DOXORUBICIN HCL [Suspect]
     Indication: BREAST CANCER
     Route: 042
  4. PACLITAXEL [Suspect]
     Indication: BREAST CANCER
     Route: 042
  5. CYCLOPHOSPHAMIDE [Suspect]
     Indication: BREAST CANCER
     Dosage: 1 AND 8 EVERY 4 WEEKS FOR 3 CYCLES.
     Route: 042
     Dates: start: 20051014
  6. METHOTREXATE [Suspect]
     Indication: BREAST CANCER
     Dosage: 1 AND 8 EVERY 4 WEEKS FOR 3 CYCLES,
     Route: 042
     Dates: start: 20051014
  7. FLUOROURACIL [Suspect]
     Indication: BREAST CANCER
     Dosage: 1 AND 8 EVERY 4 WEEKS FOR 3 CYCLES,
     Route: 042
     Dates: start: 20051014
  8. NOVOBAN [Concomitant]
     Dates: start: 20050825, end: 20050826
  9. ACETAMINOPHEN [Concomitant]
     Dates: start: 20050825

REACTIONS (2)
  - ASTHENIA [None]
  - SYNCOPE [None]
